FAERS Safety Report 26170309 (Version 1)
Quarter: 2025Q4

REPORT INFORMATION
  Report Type: Spontaneous
  Country: EU (occurrence: EU)
  Receive Date: 20251217
  Receipt Date: 20251217
  Transmission Date: 20260118
  Serious: Yes (Other)
  Sender: SANOFI AVENTIS
  Company Number: EU-SA-2025SA349057

PATIENT
  Age: 60 Year
  Sex: Male

DRUGS (7)
  1. DUPIXENT [Suspect]
     Active Substance: DUPILUMAB
     Indication: Nasal polyps
     Dosage: 300 MG, QOW
     Route: 058
     Dates: start: 202207, end: 202503
  2. DUPIXENT [Suspect]
     Active Substance: DUPILUMAB
     Indication: Asthma
  3. AMOXICILLIN [Suspect]
     Active Substance: AMOXICILLIN
     Dosage: UNK
     Dates: start: 2024, end: 2024
  4. PAROXETINE HYDROCHLORIDE [Concomitant]
     Active Substance: PAROXETINE HYDROCHLORIDE
     Indication: Seasonal affective disorder
     Dates: end: 20250526
  5. SYMBICORT [Concomitant]
     Active Substance: BUDESONIDE\FORMOTEROL FUMARATE DIHYDRATE
     Indication: Asthma
  6. NASONEX [Concomitant]
     Active Substance: MOMETASONE FUROATE
  7. ACETYLCYSTEINE [Concomitant]
     Active Substance: ACETYLCYSTEINE
     Dates: start: 202509

REACTIONS (12)
  - Hepatic cytolysis [Recovering/Resolving]
  - Multisystem inflammatory syndrome [Unknown]
  - Erythema [Recovering/Resolving]
  - Pyrexia [Recovered/Resolved]
  - Skin exfoliation [Recovering/Resolving]
  - Fatigue [Unknown]
  - Drug eruption [Unknown]
  - Rash [Recovered/Resolved]
  - Eosinophilia [Unknown]
  - Drug hypersensitivity [Recovered/Resolved]
  - Urticaria [Recovered/Resolved]
  - Injection site reaction [Recovering/Resolving]

NARRATIVE: CASE EVENT DATE: 20220701
